FAERS Safety Report 23604154 (Version 1)
Quarter: 2024Q1

REPORT INFORMATION
  Report Type: Spontaneous
  Country: CN (occurrence: CN)
  Receive Date: 20240307
  Receipt Date: 20240307
  Transmission Date: 20240410
  Serious: Yes (Other)
  Sender: FDA-Public Use
  Company Number: CN-SPECGX-T202400687

PATIENT
  Age: 79 Year
  Sex: Male

DRUGS (2)
  1. TYLOX [Suspect]
     Active Substance: ACETAMINOPHEN\OXYCODONE HYDROCHLORIDE
     Indication: Analgesic therapy
     Dosage: 1 DOSAGE FORM, Q8H
     Route: 048
     Dates: start: 20240213, end: 20240219
  2. RITONAVIR\SIMNOTRELVIR [Suspect]
     Active Substance: RITONAVIR\SIMNOTRELVIR
     Indication: SARS-CoV-2 test positive
     Dosage: 3 DOSAGE FORM, Q12H
     Route: 048
     Dates: start: 20240217, end: 20240221

REACTIONS (3)
  - SARS-CoV-2 test positive [Recovering/Resolving]
  - Myoglobin blood increased [Recovering/Resolving]
  - Blood creatinine increased [Recovering/Resolving]

NARRATIVE: CASE EVENT DATE: 20240217
